FAERS Safety Report 7570417-5 (Version None)
Quarter: 2011Q2

REPORT INFORMATION
  Report Type: 
  Country: None (occurrence: None)
  Receive Date: 20110620
  Receipt Date: 20110613
  Transmission Date: 20111010
  Serious: Yes (Hospitalization)
  Sender: FDA-Public Use
  Company Number: WAES 1003USA02914

PATIENT
  Age: 62 Year
  Sex: Male

DRUGS (3)
  1. DEXAMETHASONE [Suspect]
     Indication: MULTIPLE MYELOMA
     Dosage: 20 MG, DAILY, PO
     Route: 048
     Dates: start: 20091117, end: 20100226
  2. BLINDED THERAPY [Concomitant]
  3. BORTEZOMIB [Concomitant]

REACTIONS (7)
  - MULTIPLE MYELOMA [None]
  - DRUG INEFFECTIVE [None]
  - NEOPLASM PROGRESSION [None]
  - ARTHRALGIA [None]
  - HIP FRACTURE [None]
  - BONE LESION [None]
  - PATHOLOGICAL FRACTURE [None]
